FAERS Safety Report 7955785-4 (Version None)
Quarter: 2011Q4

REPORT INFORMATION
  Report Type: 
  Country: None (occurrence: None)
  Receive Date: 20111205
  Receipt Date: 20111125
  Transmission Date: 20120403
  Serious: Yes (Other)
  Sender: FDA-Public Use
  Company Number: FR-ACCORD-011513

PATIENT
  Age: 29 Year
  Sex: Male

DRUGS (2)
  1. IRINOTECAN HYDROCHLORIDE [Suspect]
     Indication: GLIOBLASTOMA
  2. BEVACIZUMAB [Suspect]
     Indication: GLIOBLASTOMA

REACTIONS (2)
  - DRUG INEFFECTIVE [None]
  - SKIN NECROSIS [None]
